FAERS Safety Report 18286566 (Version 2)
Quarter: 2021Q3

REPORT INFORMATION
  Report Type: Report from Study
  Country: None (occurrence: US)
  Receive Date: 20200920
  Receipt Date: 20210918
  Transmission Date: 20211014
  Serious: Yes (Other)
  Sender: FDA-Public Use
  Company Number: US-ABBVIE-20K-163-3340748-00

PATIENT
  Age: 81 Year
  Sex: Female

DRUGS (5)
  1. MODERNA COVID?19 VACCINE [Concomitant]
     Active Substance: CX-024414
     Indication: COVID-19 IMMUNISATION
     Route: 030
     Dates: start: 20210227, end: 20210227
  2. HUMIRA [Suspect]
     Active Substance: ADALIMUMAB
     Indication: PSORIATIC ARTHROPATHY
     Dosage: CITRATE FREE
     Route: 058
     Dates: start: 20181109
  3. MODERNA COVID?19 VACCINE [Concomitant]
     Active Substance: CX-024414
     Route: 030
     Dates: start: 20210327
  4. HUMIRA [Suspect]
     Active Substance: ADALIMUMAB
     Route: 058
  5. HUMIRA [Suspect]
     Active Substance: ADALIMUMAB
     Indication: PSORIASIS
     Dosage: CITRATE FREE
     Route: 058

REACTIONS (16)
  - Musculoskeletal disorder [Unknown]
  - Dropped head syndrome [Unknown]
  - Limb injury [Recovering/Resolving]
  - Pain in extremity [Unknown]
  - Unevaluable event [Unknown]
  - Osteoporosis [Unknown]
  - Arthropathy [Unknown]
  - Carpal tunnel syndrome [Unknown]
  - Hypotension [Unknown]
  - Fall [Recovering/Resolving]
  - Joint range of motion decreased [Recovered/Resolved]
  - Gastric haemorrhage [Unknown]
  - Skin discolouration [Recovering/Resolving]
  - Musculoskeletal stiffness [Unknown]
  - Blood iron decreased [Unknown]
  - Coccydynia [Recovering/Resolving]

NARRATIVE: CASE EVENT DATE: 2018
